FAERS Safety Report 19459451 (Version 5)
Quarter: 2021Q3

REPORT INFORMATION
  Report Type: Report from Study
  Country: US (occurrence: US)
  Receive Date: 20210624
  Receipt Date: 20210825
  Transmission Date: 20211014
  Serious: Yes (Other)
  Sender: FDA-Public Use
  Company Number: NVSC2021US131240

PATIENT
  Sex: Female

DRUGS (2)
  1. COSENTYX [Suspect]
     Active Substance: SECUKINUMAB
     Indication: PSORIATIC ARTHROPATHY
     Dosage: UNK
     Route: 065
     Dates: start: 202104
  2. COSENTYX [Suspect]
     Active Substance: SECUKINUMAB
     Indication: PSORIASIS

REACTIONS (7)
  - Glossodynia [Unknown]
  - Cervical spinal stenosis [Unknown]
  - Hypoaesthesia [Unknown]
  - Fall [Recovering/Resolving]
  - Dry mouth [Unknown]
  - Nasal congestion [Unknown]
  - Drug ineffective [Unknown]
